FAERS Safety Report 7570203-6 (Version None)
Quarter: 2011Q2

REPORT INFORMATION
  Report Type: 
  Country: None (occurrence: None)
  Receive Date: 20110624
  Receipt Date: 20110609
  Transmission Date: 20111010
  Serious: Yes (Hospitalization)
  Sender: FDA-Public Use
  Company Number: US-WATSON-2011-08777

PATIENT
  Age: 85 Year
  Sex: Female

DRUGS (2)
  1. MELOXICAM [Suspect]
     Indication: PRODUCT USED FOR UNKNOWN INDICATION
     Dosage: UNK
  2. PREDNISONE [Suspect]
     Indication: OSTEOARTHRITIS
     Dosage: LOW DOSE

REACTIONS (3)
  - RHEUMATOID ARTHRITIS [None]
  - POLYMYALGIA RHEUMATICA [None]
  - DRUG INEFFECTIVE [None]
